FAERS Safety Report 7463777-7 (Version None)
Quarter: 2011Q2

REPORT INFORMATION
  Report Type: 
  Country: None (occurrence: None)
  Receive Date: 20110506
  Receipt Date: 20110502
  Transmission Date: 20111010
  Serious: Yes (Death, Hospitalization, Other)
  Sender: FDA-Public Use
  Company Number: US-ELI_LILLY_AND_COMPANY-US200903003334

PATIENT
  Sex: Male
  Weight: 99.773 kg

DRUGS (39)
  1. BYETTA [Suspect]
     Dosage: 5 UG, UNK
     Dates: start: 20070701
  2. BYETTA [Suspect]
     Dosage: 5 UG, UNK
     Dates: end: 20080821
  3. NIASPAN [Concomitant]
  4. GEODON [Concomitant]
  5. ATACAND [Concomitant]
  6. PROLIXIN [Concomitant]
  7. BYETTA [Suspect]
     Dosage: 10 UG, BID
     Route: 058
  8. TRICOR [Concomitant]
  9. NAPROXEN [Concomitant]
  10. FOLIC ACID [Concomitant]
  11. CLARITIN [Concomitant]
  12. HALDOL [Concomitant]
  13. DIPHENOXYLATE HCL + ATROPINE SULFATE [Concomitant]
  14. PROPOXYPHENE NAPSYLATE W/PARACETAMOL [Concomitant]
  15. PROTONIX [Concomitant]
  16. NICOTINE [Concomitant]
  17. ACTOS [Concomitant]
  18. FLOMAX [Concomitant]
  19. LORAZEPAM [Concomitant]
  20. INVEGA [Concomitant]
  21. K-DUR [Concomitant]
  22. CELEBREX [Concomitant]
  23. VITAPLEX [Concomitant]
  24. LEVAQUIN [Concomitant]
  25. LANTUS [Concomitant]
  26. OMEPRAZOLE [Concomitant]
  27. LYRICA [Concomitant]
  28. NOVOLOG [Concomitant]
  29. HUMALOG [Concomitant]
  30. HUMALOG [Concomitant]
  31. FEXOFENADINE [Concomitant]
  32. ZETIA [Concomitant]
  33. FUROSEMIDE [Concomitant]
  34. AMITRIPTYLINE [Concomitant]
  35. AVODART [Concomitant]
  36. TRAMADOL [Concomitant]
  37. CIPROFLOXACIN [Concomitant]
  38. NYSTATIN [Concomitant]
  39. ATIVAN [Concomitant]

REACTIONS (6)
  - DEATH [None]
  - PANCREATITIS ACUTE [None]
  - DYSPEPSIA [None]
  - PANCREATITIS CHRONIC [None]
  - BLOOD GLUCOSE ABNORMAL [None]
  - OFF LABEL USE [None]
